FAERS Safety Report 6425445-X (Version None)
Quarter: 2009Q4

REPORT INFORMATION
  Report Type: 
  Country: None (occurrence: None)
  Receive Date: 20091103
  Receipt Date: 20091022
  Transmission Date: 20100525
  Serious: Yes (Other)
  Sender: FDA-Public Use
  Company Number: JP-PFIZER INC-2009271302

PATIENT
  Age: 67 Year
  Sex: Female

DRUGS (6)
  1. AMLODIPINE BESYLATE [Suspect]
     Dosage: 2.5 MG, DAILY
     Route: 065
  2. OLMETEC [Suspect]
     Indication: HYPERTENSION
     Dosage: 20 MG, DAILY
     Route: 048
     Dates: end: 20090908
  3. MUCOSTA [Concomitant]
     Route: 065
  4. METHYCOBAL [Concomitant]
     Route: 065
  5. JUVELA [Concomitant]
     Route: 065
  6. CINAL [Concomitant]
     Route: 065

REACTIONS (1)
  - ELECTROCARDIOGRAM QT PROLONGED [None]
